APPROVED DRUG PRODUCT: HIVID
Active Ingredient: ZALCITABINE
Strength: 0.75MG
Dosage Form/Route: TABLET;ORAL
Application: N020199 | Product #002
Applicant: HOFFMANN LA ROCHE INC
Approved: Jun 19, 1992 | RLD: No | RS: No | Type: DISCN